FAERS Safety Report 23485692 (Version 2)
Quarter: 2024Q2

REPORT INFORMATION
  Report Type: Spontaneous
  Country: JP (occurrence: JP)
  Receive Date: 20240206
  Receipt Date: 20240401
  Transmission Date: 20240715
  Serious: Yes (Hospitalization, Other)
  Sender: FDA-Public Use
  Company Number: JP-BAYER-2023A183245

PATIENT
  Sex: Male

DRUGS (13)
  1. EYLEA [Suspect]
     Active Substance: AFLIBERCEPT
     Indication: Age-related macular degeneration
     Dosage: 2 MG, ONCE, RIGHT EYE; SOLUTION FOR INJECTION IN PRE-FILLED SYRINGE;  40 MG/ML
     Route: 031
     Dates: start: 20230406, end: 20230406
  2. EYLEA [Suspect]
     Active Substance: AFLIBERCEPT
     Indication: Choroidal haemangioma
     Dosage: 2 MG, ONCE, RIGHT EYE; SOLUTION FOR INJECTION IN PRE-FILLED SYRINGE; 40 MG/ML
     Route: 031
     Dates: start: 20230511, end: 20230511
  3. EYLEA [Suspect]
     Active Substance: AFLIBERCEPT
     Dosage: 2 MG, ONCE, RIGHT EYE; SOLUTION FOR INJECTION IN PRE-FILLED SYRINGE; 40 MG/ML
     Route: 031
     Dates: start: 20230629, end: 20230629
  4. EYLEA [Suspect]
     Active Substance: AFLIBERCEPT
     Dosage: 2 MG, ONCE, RIGHT EYE; SOLUTION FOR INJECTION IN PRE-FILLED SYRINGE; 40 MG/ML
     Route: 031
     Dates: start: 20230817, end: 20230817
  5. EYLEA [Suspect]
     Active Substance: AFLIBERCEPT
     Dosage: 2 MG, ONCE, RIGHT EYE; SOLUTION FOR INJECTION IN PRE-FILLED SYRINGE; 40 MG/ML
     Route: 031
     Dates: start: 20231221, end: 20231221
  6. LEVOFLOXACIN HEMIHYDRATE [Suspect]
     Active Substance: LEVOFLOXACIN
     Indication: Infection prophylaxis
     Dosage: RIGHT EYE
     Route: 047
     Dates: start: 20221121, end: 20231221
  7. PHENYLEPHRINE HYDROCHLORIDE\TROPICAMIDE [Suspect]
     Active Substance: PHENYLEPHRINE HYDROCHLORIDE\TROPICAMIDE
     Indication: Mydriasis
     Dosage: RIGHT EYE
     Route: 047
  8. NEOSYNESIN [Suspect]
     Active Substance: PHENYLEPHRINE HYDROCHLORIDE
     Indication: Mydriasis
     Dosage: RIGHT EYE
     Route: 047
  9. BENOXINATE HYDROCHLORIDE [Suspect]
     Active Substance: BENOXINATE HYDROCHLORIDE
     Indication: Anaesthesia procedure
     Dosage: RIGHT EYE
     Route: 047
     Dates: start: 20231221, end: 20231221
  10. OFLOXACIN [Suspect]
     Active Substance: OFLOXACIN
     Indication: Infection prophylaxis
     Dosage: RIGHT EYE
     Route: 047
     Dates: start: 20231221, end: 20231221
  11. IODINE\POLYVINYL ALCOHOL [Suspect]
     Active Substance: IODINE\POLYVINYL ALCOHOL
     Indication: Infection prophylaxis
     Dosage: RIGHT EYE
     Route: 047
     Dates: start: 20231221, end: 20231221
  12. IODINE\POLYVINYL ALCOHOL [Suspect]
     Active Substance: IODINE\POLYVINYL ALCOHOL
     Indication: Eye irrigation
  13. FARICIMAB [Concomitant]
     Active Substance: FARICIMAB
     Indication: Product used for unknown indication
     Dosage: RIGHT EYE
     Route: 031
     Dates: start: 20231005, end: 20231116

REACTIONS (5)
  - Anaphylactic shock [Recovered/Resolved]
  - Flushing [Recovered/Resolved]
  - Laryngeal discomfort [Recovered/Resolved]
  - Urticaria [Recovered/Resolved]
  - Pruritus [Recovered/Resolved]

NARRATIVE: CASE EVENT DATE: 20231221
